FAERS Safety Report 5682421-2 (Version None)
Quarter: 2008Q1

REPORT INFORMATION
  Report Type: 
  Country: None (occurrence: None)
  Receive Date: 20080327
  Receipt Date: 20071112
  Transmission Date: 20080703
  Serious: No
  Sender: FDA-Public Use
  Company Number: US-BAUSCH-2007BL004131

PATIENT
  Age: 70 Year
  Sex: Female

DRUGS (2)
  1. ALBUTEROL SULFATE [Suspect]
     Indication: RESPIRATORY FUME INHALATION DISORDER
     Route: 049
     Dates: start: 20070801, end: 20070801
  2. THYROID T4 HORMONE [Concomitant]

REACTIONS (2)
  - DRUG HYPERSENSITIVITY [None]
  - VOMITING [None]
